FAERS Safety Report 17088865 (Version 1)
Quarter: 2019Q4

REPORT INFORMATION
  Report Type: Spontaneous
  Country: DE (occurrence: DE)
  Receive Date: 20191128
  Receipt Date: 20191128
  Transmission Date: 20200122
  Serious: Yes (Other)
  Sender: FDA-Public Use
  Company Number: DE-BRISTOL-MYERS SQUIBB COMPANY-BMS-2019-112338

PATIENT
  Sex: Female

DRUGS (3)
  1. KISQALI [Suspect]
     Active Substance: RIBOCICLIB
     Indication: BREAST CANCER
     Dosage: 400 MG, QD
     Route: 065
  2. KISQALI [Suspect]
     Active Substance: RIBOCICLIB
     Indication: PRODUCT USED FOR UNKNOWN INDICATION
     Dosage: 600 MG, QD
     Route: 065
     Dates: start: 20190128, end: 20190411
  3. ELIQUIS [Suspect]
     Active Substance: APIXABAN
     Indication: THROMBOSIS
     Dosage: UNK
     Route: 065

REACTIONS (11)
  - Epistaxis [Recovering/Resolving]
  - Blood calcium decreased [Recovering/Resolving]
  - Liver function test abnormal [Unknown]
  - Fatigue [Recovering/Resolving]
  - Thrombosis [Unknown]
  - Oral pain [Recovering/Resolving]
  - Swelling face [Recovered/Resolved]
  - Malaise [Unknown]
  - Stomatitis [Recovered/Resolved]
  - Electrocardiogram QT prolonged [Unknown]
  - Headache [Unknown]
